FAERS Safety Report 6568192-6 (Version None)
Quarter: 2010Q1

REPORT INFORMATION
  Report Type: 
  Country: None (occurrence: None)
  Receive Date: 20100203
  Receipt Date: 20100125
  Transmission Date: 20100710
  Serious: Yes (Other)
  Sender: FDA-Public Use
  Company Number: US-ROCHE-680023

PATIENT
  Sex: Male

DRUGS (2)
  1. PEGASYS [Suspect]
     Indication: HEPATITIS C
     Dosage: FORM: PFS (PRE-FILLED SYRINGE)
     Route: 065
     Dates: start: 20100114
  2. COPEGUS [Suspect]
     Indication: HEPATITIS C
     Dosage: DIVIDED DOSES
     Route: 065
     Dates: start: 20100114

REACTIONS (5)
  - ABNORMAL BEHAVIOUR [None]
  - AMMONIA INCREASED [None]
  - CONFUSIONAL STATE [None]
  - HEPATIC CIRRHOSIS [None]
  - INJECTION SITE PRURITUS [None]
